FAERS Safety Report 10305297 (Version 2)
Quarter: 2014Q3

REPORT INFORMATION
  Report Type: Report from Study
  Country: JP (occurrence: JP)
  Receive Date: 20140715
  Receipt Date: 20140715
  Transmission Date: 20150326
  Serious: Yes (Hospitalization)
  Sender: FDA-Public Use
  Company Number: JP-ELI_LILLY_AND_COMPANY-JP201405006163

PATIENT
  Age: 65 Year
  Sex: Male
  Weight: 59.5 kg

DRUGS (12)
  1. CISPLATIN. [Suspect]
     Active Substance: CISPLATIN
     Indication: NON-SMALL CELL LUNG CANCER STAGE IV
     Dosage: 75 MG/M2, UNK
     Route: 042
     Dates: start: 20140430, end: 20140430
  2. RISPERDAL [Concomitant]
     Active Substance: RISPERIDONE
     Indication: INSOMNIA
     Dosage: 1 MG, BID
     Route: 048
     Dates: start: 20140512
  3. MAGLAX [Concomitant]
     Active Substance: MAGNESIUM OXIDE
     Indication: CONSTIPATION
     Dosage: 250 MG, TID
     Route: 048
     Dates: start: 20140515
  4. CODEINE PHOSPHATE [Concomitant]
     Active Substance: CODEINE PHOSPHATE
     Indication: COUGH
     Dosage: 20 MG, TID
     Route: 048
     Dates: start: 20140403
  5. PURSENNID [Concomitant]
     Active Substance: SENNOSIDES A AND B CALCIUM
     Indication: CONSTIPATION
     Dosage: 24 MG, PRN
     Route: 048
     Dates: start: 20140508
  6. LANSOPRAZOLE. [Concomitant]
     Active Substance: LANSOPRAZOLE
     Indication: PROPHYLAXIS
     Dosage: 30 MG, QD
     Route: 048
     Dates: start: 20140403
  7. WINTERMIN [Concomitant]
     Active Substance: PROMAZINE
     Indication: INSOMNIA
     Dosage: 25 MG, PRN
     Route: 048
     Dates: start: 20140511
  8. NAIXAN [Concomitant]
     Active Substance: NAPROXEN SODIUM
     Indication: TUMOUR ASSOCIATED FEVER
     Dosage: 200 MG, TID
     Route: 048
     Dates: start: 20140429
  9. NEW LECICARBON [Concomitant]
     Active Substance: SODIUM BICARBONATE\SODIUM PHOSPHATE, MONOBASIC
     Indication: CONSTIPATION
     Dosage: 1 DF, PRN
     Dates: start: 20140508
  10. GEMCITABINE HYDROCHLORIDE. [Suspect]
     Active Substance: GEMCITABINE HYDROCHLORIDE
     Indication: NON-SMALL CELL LUNG CANCER STAGE IV
     Dosage: 1250 MG/M2, UNK
     Route: 042
     Dates: start: 20140430, end: 20140507
  11. SODIUM PICOSULFATE [Concomitant]
     Active Substance: SODIUM PICOSULFATE
     Indication: CONSTIPATION
     Dosage: UNK, PRN
     Route: 048
     Dates: start: 20140425
  12. ROHYPNOL [Concomitant]
     Active Substance: FLUNITRAZEPAM
     Indication: INSOMNIA
     Dosage: 2 MG, PRN
     Route: 048
     Dates: start: 20140511

REACTIONS (2)
  - Septic shock [Recovered/Resolved]
  - Bone marrow toxicity [Recovered/Resolved]

NARRATIVE: CASE EVENT DATE: 20140515
